FAERS Safety Report 13409175 (Version 1)
Quarter: 2017Q2

REPORT INFORMATION
  Report Type: Spontaneous
  Country: US (occurrence: US)
  Receive Date: 20170406
  Receipt Date: 20170406
  Transmission Date: 20170830
  Serious: No
  Sender: FDA-Public Use
  Company Number: None

PATIENT

DRUGS (1)
  1. AZITHROMYCIN ANHYDROUS. [Suspect]
     Active Substance: AZITHROMYCIN ANHYDROUS

REACTIONS (5)
  - Injury [None]
  - Incorrect dose administered [None]
  - Transcription medication error [None]
  - Drug dispensing error [None]
  - Inappropriate schedule of drug administration [None]
